FAERS Safety Report 9465302 (Version 3)
Quarter: 2015Q4

REPORT INFORMATION
  Report Type: Report from Study
  Country: US (occurrence: US)
  Receive Date: 20130820
  Receipt Date: 20151027
  Transmission Date: 20160305
  Serious: Yes (Other)
  Sender: FDA-Public Use
  Company Number: US-ROCHE-1264265

PATIENT
  Age: 64 Year
  Sex: Female
  Weight: 70.37 kg

DRUGS (1)
  1. LUCENTIS [Suspect]
     Active Substance: RANIBIZUMAB
     Indication: NEOVASCULAR AGE-RELATED MACULAR DEGENERATION
     Dosage: FORM STRENGTH: 10 MG/ML?OD
     Route: 050
     Dates: start: 20110328, end: 20130422

REACTIONS (1)
  - Cerebrovascular accident [Unknown]

NARRATIVE: CASE EVENT DATE: 20130629
